FAERS Safety Report 11915829 (Version 1)
Quarter: 2016Q1

REPORT INFORMATION
  Report Type: Spontaneous
  Country: US (occurrence: US)
  Receive Date: 20160114
  Receipt Date: 20160114
  Transmission Date: 20160526
  Serious: Yes (Other)
  Sender: FDA-Public Use
  Company Number: US-CIPLA LTD.-2016US00021

PATIENT

DRUGS (19)
  1. LEVOFLOXACIN. [Suspect]
     Active Substance: LEVOFLOXACIN
     Dosage: UNK
     Route: 065
  2. DURAVENT/DA [Suspect]
     Active Substance: CHLORPHENIRAMINE MALEATE\METHSCOPOLAMINE NITRATE\PHENYLEPHRINE HYDROCHLORIDE
     Dosage: UNK
     Route: 065
  3. PREDNISONE. [Suspect]
     Active Substance: PREDNISONE
     Dosage: UNK
     Route: 065
  4. SULPHADIAZINE [Suspect]
     Active Substance: SULFADIAZINE
     Dosage: UNK
     Route: 065
  5. NEOSYNEPHRINE [Suspect]
     Active Substance: PHENYLEPHRINE HYDROCHLORIDE
     Dosage: UNK
     Route: 065
  6. PLERIXAFOR [Suspect]
     Active Substance: PLERIXAFOR
     Dosage: UNK
     Route: 065
  7. CLINORIL [Suspect]
     Active Substance: SULINDAC
     Dosage: UNK
     Route: 065
  8. ACICLOVIR [Suspect]
     Active Substance: ACYCLOVIR
     Indication: URINARY TRACT INFECTION
     Dosage: UNK
     Route: 065
  9. NYSTATIN. [Suspect]
     Active Substance: NYSTATIN
     Dosage: UNK
     Route: 065
  10. PENICILLIN [Suspect]
     Active Substance: PENICILLIN
     Dosage: UNK
     Route: 065
  11. PROPOFOL. [Suspect]
     Active Substance: PROPOFOL
     Dosage: UNK
     Route: 065
  12. CIPROFLOXACIN. [Suspect]
     Active Substance: CIPROFLOXACIN
     Dosage: UNK
     Route: 065
  13. CLEOCIN [Suspect]
     Active Substance: CLINDAMYCIN PHOSPHATE
     Dosage: UNK
     Route: 065
  14. DEXTROMETHORPHAN [Suspect]
     Active Substance: DEXTROMETHORPHAN
     Dosage: UNK
     Route: 065
  15. MITREX [Suspect]
     Active Substance: UNSPECIFIED INGREDIENT
     Dosage: UNK
     Route: 065
  16. SYNTHROID [Concomitant]
     Active Substance: LEVOTHYROXINE SODIUM
     Dosage: UNK
     Route: 065
  17. PYRIDIUM [Suspect]
     Active Substance: PHENAZOPYRIDINE
     Dosage: UNK
     Route: 065
  18. AZASITE [Suspect]
     Active Substance: AZITHROMYCIN MONOHYDRATE
     Dosage: UNK
     Route: 047
  19. SEPTRA [Suspect]
     Active Substance: SULFAMETHOXAZOLE\TRIMETHOPRIM
     Dosage: UNK
     Route: 065

REACTIONS (15)
  - Pulmonary oedema [Unknown]
  - Confusional state [Unknown]
  - Neuropathy peripheral [Unknown]
  - Cough [Unknown]
  - Rash [Unknown]
  - Headache [Unknown]
  - Retching [Unknown]
  - Tendonitis [Unknown]
  - Dizziness [Not Recovered/Not Resolved]
  - Urticaria [Unknown]
  - Psychomotor hyperactivity [Unknown]
  - Bradycardia [Unknown]
  - Nausea [Unknown]
  - Anaphylactic shock [Unknown]
  - Pylorospasm [Unknown]
